FAERS Safety Report 16863731 (Version 2)
Quarter: 2019Q4

REPORT INFORMATION
  Report Type: Spontaneous
  Country: JP (occurrence: JP)
  Receive Date: 20190927
  Receipt Date: 20191001
  Transmission Date: 20200122
  Serious: Yes (Hospitalization, Other)
  Sender: FDA-Public Use
  Company Number: JP-PFIZER INC-2019406279

PATIENT
  Age: 56 Year
  Sex: Female

DRUGS (7)
  1. SPIRONOLACTONE. [Suspect]
     Active Substance: SPIRONOLACTONE
     Indication: CARDIAC FAILURE
     Dosage: 25 MG, DAILY
     Route: 048
  2. PIMOBENDAN [Concomitant]
     Active Substance: PIMOBENDAN
     Dosage: 2.5 MG, UNK
     Route: 048
  3. ALACEPRIL [Concomitant]
     Active Substance: ALACEPRIL
     Dosage: 25 MG, UNK
     Route: 048
  4. FUROSEMIDE. [Concomitant]
     Active Substance: FUROSEMIDE
     Dosage: 120 MG, UNK
     Route: 048
  5. TOLVAPTAN [Concomitant]
     Active Substance: TOLVAPTAN
     Dosage: 15 MG, UNK
     Route: 048
  6. CARVEDILOL. [Suspect]
     Active Substance: CARVEDILOL
     Dosage: 7.5 MG, UNK
     Route: 048
  7. SOTALOL [SOTALOL HYDROCHLORIDE] [Concomitant]
     Active Substance: SOTALOL HYDROCHLORIDE
     Dosage: 120 MG, UNK
     Route: 048

REACTIONS (5)
  - Liver disorder [Unknown]
  - Haemodynamic instability [Unknown]
  - Cardiac failure [Unknown]
  - Cardiomyopathy [Unknown]
  - Renal impairment [Unknown]

NARRATIVE: CASE EVENT DATE: 2016
